FAERS Safety Report 4647220-9 (Version None)
Quarter: 2005Q2

REPORT INFORMATION
  Report Type: 
  Country: None (occurrence: None)
  Receive Date: 20050426
  Receipt Date: 20050426
  Transmission Date: 20051028
  Serious: Yes (Disabling)
  Sender: FDA-Public Use
  Company Number: None

PATIENT
  Age: 68 Year
  Sex: Male
  Weight: 92.9874 kg

DRUGS (3)
  1. BEVACIZUMAB- (TRADE NAME AVASTIN MFT BY GENENTECH) [Suspect]
     Indication: PROSTATE CANCER
     Dosage: 10 MG/KB IV Q 2 WEEKS
     Route: 042
     Dates: start: 20030422, end: 20040115
  2. LUPRON [Concomitant]
  3. CASODEX [Concomitant]

REACTIONS (6)
  - BALANCE DISORDER [None]
  - DISEASE PROGRESSION [None]
  - OPTIC ISCHAEMIC NEUROPATHY [None]
  - OPTIC NEURITIS [None]
  - PAPILLOEDEMA [None]
  - VISUAL ACUITY REDUCED [None]
